FAERS Safety Report 14194495 (Version 2)
Quarter: 2017Q4

REPORT INFORMATION
  Report Type: Spontaneous
  Country: RO (occurrence: RO)
  Receive Date: 20171116
  Receipt Date: 20171124
  Transmission Date: 20180321
  Serious: Yes (Hospitalization, Other)
  Sender: FDA-Public Use
  Company Number: RO-AMGEN-ROUSP2017171757

PATIENT
  Age: 59 Year
  Sex: Female
  Weight: 130 kg

DRUGS (4)
  1. PENTOXIFILLINE [Concomitant]
     Active Substance: PENTOXIFYLLINE
     Indication: EMBOLISM
     Dosage: 400 MG, 2X/DAY
     Route: 048
     Dates: start: 20171026
  2. VESSEL DUE [Concomitant]
     Indication: EMBOLISM
     Dosage: 2 DF, DAILY
     Route: 048
     Dates: start: 20171026
  3. ENBREL [Suspect]
     Active Substance: ETANERCEPT
     Indication: PRODUCT USED FOR UNKNOWN INDICATION
     Dosage: 50 MG, WEEKLY
     Route: 058
     Dates: start: 2014, end: 201708
  4. PREDUCTAL [Concomitant]
     Active Substance: TRIMETAZIDINE DIHYDROCHLORIDE
     Indication: CARDIOMYOPATHY
     Dosage: 35 MG, 2X/DAY
     Route: 048
     Dates: start: 2014

REACTIONS (4)
  - Peripheral ischaemia [Recovering/Resolving]
  - Cerebrovascular accident [Not Recovered/Not Resolved]
  - Peripheral embolism [Recovering/Resolving]
  - Transaminases increased [Recovering/Resolving]

NARRATIVE: CASE EVENT DATE: 2017
